FAERS Safety Report 4380518-0 (Version None)
Quarter: 2004Q2

REPORT INFORMATION
  Report Type: 
  Country: None (occurrence: None)
  Receive Date: 20040614
  Receipt Date: 20040527
  Transmission Date: 20050107
  Serious: Yes (Hospitalization)
  Sender: FDA-Public Use
  Company Number: 198774

PATIENT
  Age: 48 Year
  Sex: Male

DRUGS (2)
  1. AVONEX ^BIOGEN^ [Suspect]
     Indication: MULTIPLE SCLEROSIS
     Dosage: 30 MCG QW IM
     Route: 030
     Dates: start: 20030303
  2. AVONEX ^BIOGEN^ [Suspect]
     Indication: MULTIPLE SCLEROSIS
     Dosage: 30 MCG QW IM

REACTIONS (1)
  - ANKLE FRACTURE [None]
